FAERS Safety Report 5690602-7 (Version None)
Quarter: 2008Q1

REPORT INFORMATION
  Report Type: 
  Country: None (occurrence: None)
  Receive Date: 20080331
  Receipt Date: 20080331
  Transmission Date: 20080703
  Serious: Yes (Other)
  Sender: FDA-Public Use
  Company Number: None

PATIENT
  Age: 10 Year
  Sex: Male
  Weight: 40.8237 kg

DRUGS (2)
  1. SINGULAIR [Suspect]
     Indication: EPISTAXIS
     Dosage: 1 TABLET DAILY EVERY EVENING
     Dates: start: 20080314, end: 20080328
  2. SINGULAIR [Suspect]
     Indication: MULTIPLE ALLERGIES
     Dosage: 1 TABLET DAILY EVERY EVENING
     Dates: start: 20080314, end: 20080328

REACTIONS (6)
  - ANGER [None]
  - CRYING [None]
  - DEPRESSED MOOD [None]
  - ILL-DEFINED DISORDER [None]
  - INSOMNIA [None]
  - MALAISE [None]
